FAERS Safety Report 7327097-3 (Version None)
Quarter: 2011Q1

REPORT INFORMATION
  Report Type: 
  Country: None (occurrence: None)
  Receive Date: 20110302
  Receipt Date: 20110223
  Transmission Date: 20110831
  Serious: Yes (Other)
  Sender: FDA-Public Use
  Company Number: US-US-EMD SERONO, INC.-7021865

PATIENT
  Sex: Female

DRUGS (3)
  1. REBIF [Suspect]
     Indication: PRODUCT USED FOR UNKNOWN INDICATION
     Route: 058
     Dates: start: 20100827, end: 20110221
  2. ATIVAN [Concomitant]
  3. ACETAMINOPHEN [Concomitant]
     Indication: PREMEDICATION

REACTIONS (13)
  - PANIC ATTACK [None]
  - FEELING ABNORMAL [None]
  - MALAISE [None]
  - HYPERTENSION [None]
  - NASOPHARYNGITIS [None]
  - HEADACHE [None]
  - DIZZINESS [None]
  - DYSPNOEA [None]
  - INJECTION SITE HAEMORRHAGE [None]
  - DYSPHAGIA [None]
  - INFLUENZA LIKE ILLNESS [None]
  - CHEST PAIN [None]
  - CHILLS [None]
